FAERS Safety Report 6966694-1 (Version None)
Quarter: 2010Q3

REPORT INFORMATION
  Report Type: 
  Country: None (occurrence: None)
  Receive Date: 20100906
  Receipt Date: 20100826
  Transmission Date: 20110219
  Serious: No
  Sender: FDA-Public Use
  Company Number: US-BIOGENIDEC-2010BI030058

PATIENT
  Sex: Female

DRUGS (1)
  1. AVONEX [Suspect]
     Indication: MULTIPLE SCLEROSIS
     Route: 030
     Dates: start: 20090101

REACTIONS (7)
  - ADVERSE DRUG REACTION [None]
  - CHAPPED LIPS [None]
  - FATIGUE [None]
  - FEELING ABNORMAL [None]
  - IMMUNISATION REACTION [None]
  - RASH [None]
  - SINUSITIS [None]
